FAERS Safety Report 14335338 (Version 1)
Quarter: 2017Q4

REPORT INFORMATION
  Report Type: Report from Study
  Country: US (occurrence: US)
  Receive Date: 20171229
  Receipt Date: 20171229
  Transmission Date: 20180321
  Serious: Yes (Other)
  Sender: FDA-Public Use
  Company Number: US-ACCORD-062378

PATIENT
  Age: 51 Year
  Sex: Male

DRUGS (3)
  1. FLUOROURACIL. [Suspect]
     Active Substance: FLUOROURACIL
     Indication: OESOPHAGEAL CARCINOMA
     Route: 042
  2. OXALIPLATIN. [Concomitant]
     Active Substance: OXALIPLATIN
     Indication: OESOPHAGEAL CARCINOMA
  3. FOLINIC ACID [Concomitant]
     Active Substance: LEUCOVORIN
     Indication: OESOPHAGEAL CARCINOMA

REACTIONS (3)
  - Off label use [Unknown]
  - Cardiotoxicity [Recovered/Resolved]
  - Acute coronary syndrome [Recovered/Resolved]
